FAERS Safety Report 5377840-8 (Version None)
Quarter: 2007Q3

REPORT INFORMATION
  Report Type: 
  Country: None (occurrence: None)
  Receive Date: 20070703
  Receipt Date: 20070625
  Transmission Date: 20080115
  Serious: Yes (Other)
  Sender: FDA-Public Use
  Company Number: US-PFIZER INC-2007053031

PATIENT
  Sex: Male
  Weight: 90 kg

DRUGS (9)
  1. CHANTIX [Suspect]
     Indication: SMOKING CESSATION THERAPY
  2. ACETYLSALICYLIC ACID SRT [Concomitant]
  3. LEVOXYL [Concomitant]
  4. ZOLOFT [Concomitant]
  5. LAMICTAL [Concomitant]
  6. LIPITOR [Concomitant]
     Indication: BLOOD CHOLESTEROL
  7. BILE ACID SEQUESTRANTS [Concomitant]
  8. TUMS [Concomitant]
  9. NORVASC [Concomitant]

REACTIONS (4)
  - INCORRECT DOSE ADMINISTERED [None]
  - NAUSEA [None]
  - PNEUMONIA [None]
  - VOMITING [None]
